FAERS Safety Report 5353730-1 (Version None)
Quarter: 2007Q2

REPORT INFORMATION
  Report Type: 
  Country: None (occurrence: None)
  Receive Date: 20070521
  Receipt Date: 20070131
  Transmission Date: 20071010
  Serious: No
  Sender: FDA-Public Use
  Company Number: WAES 0702USA00179

PATIENT
  Age: 54 Year
  Sex: Male
  Weight: 85.7298 kg

DRUGS (4)
  1. JANUVIA [Suspect]
     Indication: DIABETES MELLITUS NON-INSULIN-DEPENDENT
     Dosage: 100 MG/DAILY/PO
     Route: 048
     Dates: start: 20070117, end: 20070101
  2. ACTOS [Concomitant]
  3. GLUCOPHAGE [Concomitant]
  4. PLAVIX [Concomitant]

REACTIONS (1)
  - CHEST PAIN [None]
